FAERS Safety Report 25733677 (Version 4)
Quarter: 2025Q4

REPORT INFORMATION
  Report Type: Spontaneous
  Country: US (occurrence: US)
  Receive Date: 20250828
  Receipt Date: 20251215
  Transmission Date: 20260117
  Serious: Yes (Other)
  Sender: CATALYST PHARMA
  Company Number: US-CATALYST PHARMACEUTICALS, INC-US-CATA-25-00461

PATIENT
  Sex: Female
  Weight: 64.853 kg

DRUGS (26)
  1. FIRDAPSE [Suspect]
     Active Substance: AMIFAMPRIDINE PHOSPHATE
     Indication: Myasthenic syndrome
     Dosage: 1 TABLET THREE TIMES PER DAY (30 MG A DAY)
     Route: 048
     Dates: start: 20210202, end: 202106
  2. FIRDAPSE [Suspect]
     Active Substance: AMIFAMPRIDINE PHOSPHATE
     Dosage: 80 MG PER DAY (2 TABLETS 6-4 TIMES PER DAY)
     Route: 048
     Dates: start: 20210609, end: 202503
  3. FIRDAPSE [Suspect]
     Active Substance: AMIFAMPRIDINE PHOSPHATE
     Dosage: 2 TABLETS 3-4 TIMES A DAY
     Route: 048
     Dates: start: 20251126, end: 2025
  4. FIRDAPSE [Suspect]
     Active Substance: AMIFAMPRIDINE PHOSPHATE
     Dosage: 2 TABLETS 6-4 TIMES A DAY
     Route: 048
     Dates: start: 2025
  5. TYLENOL [Concomitant]
     Active Substance: ACETAMINOPHEN
     Indication: Pain
     Dosage: 500 MG AS NEEDED
     Route: 048
  6. ASPIRIN [Concomitant]
     Active Substance: ASPIRIN
     Indication: Thrombosis prophylaxis
     Dosage: 81 MG DAILY
     Route: 048
  7. BENADRYL [Concomitant]
     Active Substance: DIPHENHYDRAMINE HYDROCHLORIDE
     Indication: Hypersensitivity
     Dosage: 25 MG AS NEEDED
     Route: 048
  8. DOXYCYCLINE [Concomitant]
     Active Substance: DOXYCYCLINE
     Indication: Skin disorder
     Dosage: 40 MILLIGRAM QD
     Route: 065
  9. DOXYCYCLINE [Concomitant]
     Active Substance: DOXYCYCLINE
     Dosage: 20 MG DAILY
     Route: 065
  10. FOLATE SODIUM [Concomitant]
     Active Substance: FOLATE SODIUM
     Indication: Hypovitaminosis
     Dosage: 400 MCG DAILY
     Route: 048
  11. HYDROXYCHLOROQUINE [Concomitant]
     Active Substance: HYDROXYCHLOROQUINE
     Indication: Systemic lupus erythematosus
     Dosage: 400 MG DAILY
     Route: 048
  12. IBUPROFEN [Concomitant]
     Active Substance: IBUPROFEN
     Indication: Pain
     Dosage: 200 MG AS NEEDED
     Route: 065
  13. LACTATED RINGERS SOLUTION [Concomitant]
     Active Substance: CALCIUM CHLORIDE\POTASSIUM CHLORIDE\SODIUM CHLORIDE\SODIUM LACTATE
     Indication: Autonomic nervous system imbalance
     Dosage: 1.5 L WEEKLY
     Route: 042
  14. MEDROL [Concomitant]
     Active Substance: METHYLPREDNISOLONE
     Indication: Systemic lupus erythematosus
     Dosage: 4 MG AS NEEDED
     Route: 065
  15. MYCOPHENOLATE MOFETIL [Concomitant]
     Active Substance: MYCOPHENOLATE MOFETIL
     Indication: Myasthenic syndrome
     Dosage: 500 MG DAILY
     Route: 048
  16. OCTAGAM IMMUNE GLOBULIN (HUMAN) [Concomitant]
     Active Substance: HUMAN IMMUNOGLOBULIN G
     Indication: Myasthenic syndrome
     Dosage: 10 G ONCE A MONTH
     Route: 042
  17. PHENTERMINE [Concomitant]
     Active Substance: PHENTERMINE
     Indication: Asthenia
     Dosage: 15 - 30 MG AS NEEDED
     Route: 048
  18. PREDNISONE [Concomitant]
     Active Substance: PREDNISONE
     Indication: Inflammation
     Dosage: 10 MG AS NEEDED
     Route: 048
  19. PRENATAL 19 [Concomitant]
     Active Substance: .ALPHA.-TOCOPHEROL ACETATE, DL-\.BETA.-CAROTENE\ASCORBIC ACID\CALCIUM CARBONATE\CALCIUM PANTOTHENATE
     Indication: Hypovitaminosis
     Dosage: ONE TABLET DAILY
     Route: 048
  20. SALINE [Concomitant]
     Active Substance: SODIUM CHLORIDE
     Indication: Autonomic nervous system imbalance
     Dosage: 1.5 L ONCE WEEKLY
     Route: 042
  21. SENNA PLUS [Concomitant]
     Active Substance: DOCUSATE SODIUM\SENNOSIDES\SENNOSIDES A AND B
     Indication: Diverticulitis
     Dosage: TABLET TWICE DAILY
     Route: 048
  22. TUMS [Concomitant]
     Active Substance: CALCIUM CARBONATE
     Indication: Abdominal pain upper
     Dosage: 500 MG AS NEEDED
     Route: 065
  23. VITAMIN B12 [Concomitant]
     Active Substance: CYANOCOBALAMIN
     Indication: Hypovitaminosis
     Dosage: 100 MCG DAILY
     Route: 048
  24. MESTINON [Concomitant]
     Active Substance: PYRIDOSTIGMINE BROMIDE
     Indication: Myasthenia gravis
     Dosage: 60 MG TWICE DAILY
     Route: 065
  25. SAPHNELO [Concomitant]
     Active Substance: ANIFROLUMAB-FNIA
     Indication: Myasthenic syndrome
     Dosage: 300 MG ONCE MONTHLY
     Route: 042
  26. SINO PLUS [Concomitant]
     Indication: Diverticulitis
     Dosage: TWICE DAILY
     Route: 065

REACTIONS (3)
  - Myasthenia gravis [Unknown]
  - Hepatic steatosis [Recovered/Resolved]
  - Abdominal discomfort [Not Recovered/Not Resolved]

NARRATIVE: CASE EVENT DATE: 20210101
